FAERS Safety Report 11122857 (Version 1)
Quarter: 2015Q2

REPORT INFORMATION
  Report Type: Spontaneous
  Country: US (occurrence: US)
  Receive Date: 20150519
  Receipt Date: 20150519
  Transmission Date: 20150821
  Serious: No
  Sender: FDA-Public Use
  Company Number: US-PFIZER INC-2015166991

PATIENT
  Sex: Female

DRUGS (6)
  1. LYRICA [Suspect]
     Active Substance: PREGABALIN
     Dosage: UNK
  2. NORPRAMIN [Suspect]
     Active Substance: DESIPRAMINE HYDROCHLORIDE
     Dosage: UNK
  3. GABAPENTIN. [Suspect]
     Active Substance: GABAPENTIN
     Dosage: UNK
  4. ZOLOFT [Suspect]
     Active Substance: SERTRALINE HYDROCHLORIDE
     Dosage: UNK
  5. NEXIUM [Suspect]
     Active Substance: ESOMEPRAZOLE MAGNESIUM
     Dosage: UNK
  6. FIORINAL [Suspect]
     Active Substance: ASPIRIN\BUTALBITAL\CAFFEINE
     Dosage: UNK

REACTIONS (1)
  - Drug hypersensitivity [Unknown]
